FAERS Safety Report 12841333 (Version 2)
Quarter: 2018Q2

REPORT INFORMATION
  Report Type: Report from Study
  Country: CL (occurrence: CL)
  Receive Date: 20161012
  Receipt Date: 20180407
  Transmission Date: 20180711
  Serious: Yes (Other)
  Sender: FDA-Public Use
  Company Number: CL-B.I. PHARMACEUTICALS,INC./RIDGEFIELD-2016-BI-065351

PATIENT
  Age: 61 Year
  Sex: Male
  Weight: 76.5 kg

DRUGS (14)
  1. METFORMINE [Concomitant]
     Active Substance: METFORMIN HYDROCHLORIDE
     Route: 048
     Dates: start: 20160705, end: 20160706
  2. METFORMINE [Concomitant]
     Active Substance: METFORMIN HYDROCHLORIDE
     Route: 048
     Dates: start: 20160707
  3. LOSARTAN. [Concomitant]
     Active Substance: LOSARTAN
     Indication: HYPERTENSION
     Route: 048
  4. ATORVASTATINE [Concomitant]
     Active Substance: ATORVASTATIN
     Indication: HYPERLIPIDAEMIA
     Route: 048
  5. ATENOLOL. [Concomitant]
     Active Substance: ATENOLOL
     Indication: HYPERTENSIVE HEART DISEASE
     Route: 048
  6. GLARGINE INSULINE [Concomitant]
     Indication: TYPE 2 DIABETES MELLITUS
     Route: 058
     Dates: end: 20160412
  7. METFORMINE [Concomitant]
     Active Substance: METFORMIN HYDROCHLORIDE
     Indication: TYPE 2 DIABETES MELLITUS
     Route: 048
     Dates: end: 20160704
  8. ACETYLSALICILIC ACID [Concomitant]
     Active Substance: ASPIRIN
     Indication: CARDIOVASCULAR EVENT PROPHYLAXIS
     Route: 048
  9. PARGEVERINA CLORHIDRATO [Concomitant]
     Indication: RENAL COLIC
     Route: 048
     Dates: start: 20160629, end: 20160702
  10. GLARGINE INSULINE [Concomitant]
     Route: 058
     Dates: start: 20160413, end: 20160916
  11. GLARGINE INSULINE [Concomitant]
     Route: 058
     Dates: start: 20160917
  12. TAMSULOSINA [Concomitant]
     Active Substance: TAMSULOSIN HYDROCHLORIDE
     Indication: RENAL COLIC
     Route: 048
     Dates: start: 20160629, end: 20160702
  13. LINAGLIPTIN [Suspect]
     Active Substance: LINAGLIPTIN
     Indication: TYPE 2 DIABETES MELLITUS
     Route: 048
     Dates: start: 20160412, end: 20160928
  14. PARACETAMOL [Concomitant]
     Active Substance: ACETAMINOPHEN
     Indication: RENAL COLIC
     Route: 048
     Dates: start: 20160629, end: 20160702

REACTIONS (1)
  - Atrial fibrillation [Recovered/Resolved]

NARRATIVE: CASE EVENT DATE: 20160807
